FAERS Safety Report 12511417 (Version 5)
Quarter: 2019Q4

REPORT INFORMATION
  Report Type: Report from Study
  Country: US (occurrence: US)
  Receive Date: 20160629
  Receipt Date: 20191111
  Transmission Date: 20200122
  Serious: Yes (Hospitalization)
  Sender: FDA-Public Use
  Company Number: US-ALLERGAN-1661321US

PATIENT
  Sex: Female
  Weight: 57.14 kg

DRUGS (3)
  1. COSOPT [Concomitant]
     Active Substance: DORZOLAMIDE HYDROCHLORIDE\TIMOLOL MALEATE
     Indication: GLAUCOMA
     Dosage: 1 GTT, BID
     Route: 047
  2. CENTRUM SILVER [Concomitant]
     Active Substance: MINERALS\VITAMINS
     Indication: SUPPLEMENTATION THERAPY
     Dosage: 1 DF, QD
     Route: 048
  3. CYCLOSPORINE 0.5MG/ML EML (9054X) [Suspect]
     Active Substance: CYCLOSPORINE
     Indication: DRY EYE
     Dosage: 2 GTT, BID
     Route: 047
     Dates: start: 201009

REACTIONS (8)
  - Memory impairment [Not Recovered/Not Resolved]
  - Haematocrit decreased [Unknown]
  - Gait disturbance [Unknown]
  - Weight decreased [Recovered/Resolved]
  - Asthenia [Recovered/Resolved]
  - Vitamin D deficiency [Unknown]
  - Anaemia [Recovered/Resolved]
  - Back disorder [Unknown]

NARRATIVE: CASE EVENT DATE: 20160411
